FAERS Safety Report 19152453 (Version 1)
Quarter: 2021Q2

REPORT INFORMATION
  Report Type: Spontaneous
  Country: US (occurrence: US)
  Receive Date: 20210416
  Receipt Date: 20210416
  Transmission Date: 20210717
  Serious: Yes (Death)
  Sender: FDA-Public Use
  Company Number: None

PATIENT
  Sex: Male

DRUGS (17)
  1. RABEPRAZOLE [Concomitant]
     Active Substance: RABEPRAZOLE
  2. ALBUTEROL HFA [Concomitant]
     Active Substance: ALBUTEROL SULFATE
  3. FUROSEMIDE. [Concomitant]
     Active Substance: FUROSEMIDE
  4. PREDNISONE. [Concomitant]
     Active Substance: PREDNISONE
  5. ESBRIET [Suspect]
     Active Substance: PIRFENIDONE
     Indication: PULMONARY FIBROSIS
     Route: 048
  6. VIRTUSSIN AC [Concomitant]
     Active Substance: CODEINE PHOSPHATE\GUAIFENESIN
  7. ERYTHROMYCIN OIN [Concomitant]
  8. LUMIGAN [Concomitant]
     Active Substance: BIMATOPROST
  9. AMLODIPINE [Concomitant]
     Active Substance: AMLODIPINE BESYLATE
  10. BUDES/FORMOT AER [Concomitant]
  11. HYDROCLORT [Concomitant]
  12. HYDROCORTISO CRE [Concomitant]
  13. PROPRAZNOLOL [Concomitant]
  14. CLOTRIMAZOLE. [Concomitant]
     Active Substance: CLOTRIMAZOLE
  15. BUMETANIDE. [Concomitant]
     Active Substance: BUMETANIDE
  16. OMEPRAZOLE. [Concomitant]
     Active Substance: OMEPRAZOLE
  17. ROSUVASTATIN. [Concomitant]
     Active Substance: ROSUVASTATIN

REACTIONS (1)
  - Death [None]
